FAERS Safety Report 25501699 (Version 1)
Quarter: 2025Q3

REPORT INFORMATION
  Report Type: Spontaneous
  Country: CN (occurrence: CN)
  Receive Date: 20250701
  Receipt Date: 20250701
  Transmission Date: 20251021
  Serious: Yes (Hospitalization)
  Sender: BEIGENE
  Company Number: CN-BEIGENE-BGN-2025-010123

PATIENT
  Age: 71 Year
  Weight: 50 kg

DRUGS (24)
  1. TISLELIZUMAB [Suspect]
     Active Substance: TISLELIZUMAB
     Indication: Lung neoplasm malignant
  2. TISLELIZUMAB [Suspect]
     Active Substance: TISLELIZUMAB
     Route: 041
  3. TISLELIZUMAB [Suspect]
     Active Substance: TISLELIZUMAB
     Route: 041
  4. TISLELIZUMAB [Suspect]
     Active Substance: TISLELIZUMAB
  5. ETOPOSIDE [Suspect]
     Active Substance: ETOPOSIDE
     Indication: Lung neoplasm malignant
  6. ETOPOSIDE [Suspect]
     Active Substance: ETOPOSIDE
  7. ETOPOSIDE [Suspect]
     Active Substance: ETOPOSIDE
     Route: 041
  8. ETOPOSIDE [Suspect]
     Active Substance: ETOPOSIDE
     Route: 041
  9. ETOPOSIDE [Suspect]
     Active Substance: ETOPOSIDE
  10. ETOPOSIDE [Suspect]
     Active Substance: ETOPOSIDE
  11. ETOPOSIDE [Suspect]
     Active Substance: ETOPOSIDE
     Route: 041
  12. ETOPOSIDE [Suspect]
     Active Substance: ETOPOSIDE
     Route: 041
  13. CISPLATIN [Suspect]
     Active Substance: CISPLATIN
     Indication: Lung neoplasm malignant
  14. CISPLATIN [Suspect]
     Active Substance: CISPLATIN
     Route: 041
  15. CISPLATIN [Suspect]
     Active Substance: CISPLATIN
     Route: 041
  16. CISPLATIN [Suspect]
     Active Substance: CISPLATIN
  17. SODIUM CHLORIDE [Concomitant]
     Active Substance: SODIUM CHLORIDE
     Indication: Vehicle solution use
  18. SODIUM CHLORIDE [Concomitant]
     Active Substance: SODIUM CHLORIDE
     Route: 041
  19. SODIUM CHLORIDE [Concomitant]
     Active Substance: SODIUM CHLORIDE
     Route: 041
  20. SODIUM CHLORIDE [Concomitant]
     Active Substance: SODIUM CHLORIDE
  21. SODIUM CHLORIDE [Concomitant]
     Active Substance: SODIUM CHLORIDE
  22. SODIUM CHLORIDE [Concomitant]
     Active Substance: SODIUM CHLORIDE
     Route: 041
  23. SODIUM CHLORIDE [Concomitant]
     Active Substance: SODIUM CHLORIDE
  24. SODIUM CHLORIDE [Concomitant]
     Active Substance: SODIUM CHLORIDE
     Route: 041

REACTIONS (1)
  - Myelosuppression [Recovering/Resolving]
